FAERS Safety Report 7368688-3 (Version None)
Quarter: 2011Q1

REPORT INFORMATION
  Report Type: 
  Country: None (occurrence: None)
  Receive Date: 20110321
  Receipt Date: 20110321
  Transmission Date: 20110831
  Serious: Yes (Other)
  Sender: FDA-Public Use
  Company Number: None

PATIENT
  Sex: Female
  Weight: 65.7716 kg

DRUGS (1)
  1. BISOPROLOL FUMARATE [Suspect]
     Indication: HYPERTENSION
     Dosage: 1 TABLET DAILY ORAL
     Route: 048
     Dates: start: 20070101

REACTIONS (5)
  - NAUSEA [None]
  - PRODUCT SUBSTITUTION ISSUE [None]
  - DIARRHOEA [None]
  - DIZZINESS [None]
  - VOMITING [None]
